FAERS Safety Report 24929028 (Version 1)
Quarter: 2025Q1

REPORT INFORMATION
  Report Type: Spontaneous
  Country: AR (occurrence: AR)
  Receive Date: 20250205
  Receipt Date: 20250205
  Transmission Date: 20250408
  Serious: Yes (Death)
  Sender: MYLAN
  Company Number: AR-MYLANLABS-2025M1010529

PATIENT
  Age: 55 Year
  Sex: Female

DRUGS (1)
  1. CLOZAPINE [Suspect]
     Active Substance: CLOZAPINE
     Indication: Product used for unknown indication
     Route: 065
     Dates: start: 20250103

REACTIONS (1)
  - Death [Fatal]

NARRATIVE: CASE EVENT DATE: 20250120
